FAERS Safety Report 17191303 (Version 1)
Quarter: 2019Q4

REPORT INFORMATION
  Report Type: Spontaneous
  Country: US (occurrence: US)
  Receive Date: 20191221
  Receipt Date: 20191221
  Transmission Date: 20200122
  Serious: Yes (Other)
  Sender: FDA-Public Use
  Company Number: None

PATIENT
  Age: 43 Year
  Sex: Female
  Weight: 74.25 kg

DRUGS (1)
  1. HYDROGEN PEROXIDE (KROGER BRAND) [Suspect]
     Active Substance: HYDROGEN PEROXIDE
     Indication: PRODUCT USED FOR UNKNOWN INDICATION
     Dates: start: 20191221, end: 20191221

REACTIONS (2)
  - Muscle spasms [None]
  - Swelling [None]

NARRATIVE: CASE EVENT DATE: 20191221
